FAERS Safety Report 5103227-9 (Version None)
Quarter: 2006Q3

REPORT INFORMATION
  Report Type: 
  Country: None (occurrence: None)
  Receive Date: 20060913
  Receipt Date: 20060901
  Transmission Date: 20061208
  Serious: Yes (Other)
  Sender: FDA-Public Use
  Company Number: US-JNJFOC-20060701715

PATIENT
  Sex: Female
  Weight: 83.01 kg

DRUGS (4)
  1. REMICADE [Suspect]
     Route: 042
  2. REMICADE [Suspect]
     Indication: RHEUMATOID ARTHRITIS
     Route: 042
  3. METHOTREXATE [Suspect]
     Indication: DRUG USE FOR UNKNOWN INDICATION
  4. PREDNISONE TAB [Concomitant]

REACTIONS (4)
  - DRUG HYPERSENSITIVITY [None]
  - HEPATOCELLULAR DAMAGE [None]
  - MOBILITY DECREASED [None]
  - PULMONARY EMBOLISM [None]
